FAERS Safety Report 21141084 (Version 6)
Quarter: 2022Q3

REPORT INFORMATION
  Report Type: Report from Study
  Country: US (occurrence: US)
  Receive Date: 20220728
  Receipt Date: 20220923
  Transmission Date: 20221027
  Serious: Yes (Hospitalization, Other)
  Sender: FDA-Public Use
  Company Number: US-GILEAD-2022-0591310

PATIENT
  Sex: Female

DRUGS (4)
  1. AMBRISENTAN [Suspect]
     Active Substance: AMBRISENTAN
     Indication: Pulmonary hypertension
     Dosage: 10 MG, QD
     Route: 048
     Dates: start: 20140909
  2. ELIQUIS [Concomitant]
     Active Substance: APIXABAN
  3. ADEMPAS [Concomitant]
     Active Substance: RIOCIGUAT
  4. VELETRI [Concomitant]
     Active Substance: EPOPROSTENOL

REACTIONS (5)
  - Kidney infection [Unknown]
  - Gastrointestinal haemorrhage [Unknown]
  - Haemorrhage [Not Recovered/Not Resolved]
  - Lower gastrointestinal haemorrhage [Unknown]
  - Renal failure [Not Recovered/Not Resolved]
